FAERS Safety Report 23741380 (Version 2)
Quarter: 2025Q1

REPORT INFORMATION
  Report Type: Spontaneous
  Country: IN (occurrence: IN)
  Receive Date: 20240415
  Receipt Date: 20250314
  Transmission Date: 20250409
  Serious: Yes (Hospitalization, Other)
  Sender: SANDOZ
  Company Number: IN-SANDOZ-SDZ2024IN038322

PATIENT
  Age: 52 Year
  Sex: Male

DRUGS (3)
  1. MYFORTIC [Suspect]
     Active Substance: MYCOPHENOLATE SODIUM
     Indication: Renal transplant
     Dosage: 720 MG, BID
     Route: 048
  2. TACROLIMUS [Suspect]
     Active Substance: TACROLIMUS
     Indication: Renal transplant
     Dosage: 1.5 MG, BID
     Route: 048
  3. TACROLIMUS [Suspect]
     Active Substance: TACROLIMUS
     Dosage: 1.75 MG, BID
     Route: 048

REACTIONS (4)
  - Hospitalisation [Unknown]
  - Congenital cystic kidney disease [Unknown]
  - Transurethral prostatectomy [Unknown]
  - Pyrexia [Unknown]

NARRATIVE: CASE EVENT DATE: 20240410
